FAERS Safety Report 17773790 (Version 1)
Quarter: 2020Q2

REPORT INFORMATION
  Report Type: Spontaneous
  Country: US (occurrence: US)
  Receive Date: 20200513
  Receipt Date: 20200513
  Transmission Date: 20200714
  Serious: No
  Sender: FDA-Public Use
  Company Number: US-TEVA-2020-US-1234002

PATIENT
  Sex: Male

DRUGS (2)
  1. METOPROLOL SUCCINATE TEVA [Suspect]
     Active Substance: METOPROLOL SUCCINATE
     Indication: ATRIAL FIBRILLATION
  2. METOPROLOL SUCCINATE TEVA [Suspect]
     Active Substance: METOPROLOL SUCCINATE
     Indication: PALPITATIONS
     Dates: start: 20200225

REACTIONS (2)
  - Drug ineffective [Recovered/Resolved with Sequelae]
  - Product substitution issue [Unknown]

NARRATIVE: CASE EVENT DATE: 202002
